FAERS Safety Report 9869666 (Version 1)
Quarter: 2014Q1

REPORT INFORMATION
  Report Type: Spontaneous
  Country: IT (occurrence: None)
  Receive Date: 20140131
  Receipt Date: 20140131
  Transmission Date: 20141002
  Serious: Yes (Hospitalization)
  Sender: FDA-Public Use
  Company Number: 2014AP000772

PATIENT
  Age: 52 Year
  Sex: Male

DRUGS (5)
  1. CLARITHROMYCIN [Suspect]
     Indication: HELICOBACTER INFECTION
     Route: 048
     Dates: start: 20131031, end: 20131031
  2. AMOXICILLIN TRIHYDRATE [Suspect]
     Indication: HELICOBACTER INFECTION
     Route: 048
     Dates: start: 20131031, end: 20131031
  3. LOBIVON [Concomitant]
  4. PANTOPRAZOLE SODIUM [Concomitant]
  5. MESALAZINE [Concomitant]

REACTIONS (4)
  - Dyspnoea [None]
  - Nausea [None]
  - Rash [None]
  - Tachycardia [None]
